FAERS Safety Report 14995878 (Version 1)
Quarter: 2018Q2

REPORT INFORMATION
  Report Type: Spontaneous
  Country: US (occurrence: US)
  Receive Date: 20180522
  Receipt Date: 20180522
  Transmission Date: 20180711
  Serious: Yes (Hospitalization)
  Sender: FDA-Public Use
  Company Number: None

PATIENT
  Age: 61 Year
  Sex: Female

DRUGS (13)
  1. ZOLMITRPTAN [Concomitant]
  2. ORENCIA [Suspect]
     Active Substance: ABATACEPT
     Indication: RHEUMATOID ARTHRITIS
     Route: 058
     Dates: start: 20151225
  3. ARIPIRAZOLE [Concomitant]
     Active Substance: ARIPIPRAZOLE
  4. CYANOCABALAM [Concomitant]
  5. PREDNISONE. [Concomitant]
     Active Substance: PREDNISONE
  6. LAMOTRIGINE. [Concomitant]
     Active Substance: LAMOTRIGINE
  7. PLAQUENIL [Concomitant]
     Active Substance: HYDROXYCHLOROQUINE SULFATE
  8. HYDROCO [Concomitant]
  9. DIAZEPAM. [Concomitant]
     Active Substance: DIAZEPAM
  10. ALENDRONATE [Concomitant]
     Active Substance: ALENDRONATE SODIUM
  11. METHOTREXATE. [Concomitant]
     Active Substance: METHOTREXATE
  12. LAMOTRIGINE. [Concomitant]
     Active Substance: LAMOTRIGINE
  13. SULFASALAZINE DELAYED-RELEASE [Concomitant]
     Active Substance: SULFASALAZINE

REACTIONS (1)
  - Pleurisy [None]

NARRATIVE: CASE EVENT DATE: 20180322
